FAERS Safety Report 11892783 (Version 2)
Quarter: 2016Q1

REPORT INFORMATION
  Report Type: Spontaneous
  Country: US (occurrence: US)
  Receive Date: 20160106
  Receipt Date: 20160107
  Transmission Date: 20160526
  Serious: No
  Sender: FDA-Public Use
  Company Number: US-PFIZER INC-2016001920

PATIENT
  Age: 59 Year
  Sex: Female

DRUGS (3)
  1. EFFEXOR XR [Suspect]
     Active Substance: VENLAFAXINE HYDROCHLORIDE
     Indication: MENOPAUSE
     Dosage: 37.5 MG, 1X/DAY
     Route: 048
     Dates: start: 20151231
  2. EFFEXOR XR [Suspect]
     Active Substance: VENLAFAXINE HYDROCHLORIDE
     Indication: PAIN
  3. EFFEXOR XR [Suspect]
     Active Substance: VENLAFAXINE HYDROCHLORIDE
     Indication: STRESS

REACTIONS (14)
  - Heart rate irregular [Recovered/Resolved]
  - Dizziness [Recovered/Resolved]
  - Peripheral swelling [Unknown]
  - Limb discomfort [Recovering/Resolving]
  - Product use issue [Not Recovered/Not Resolved]
  - Vision blurred [Recovering/Resolving]
  - Nausea [Recovering/Resolving]
  - Head discomfort [Recovering/Resolving]
  - Chest pain [Not Recovered/Not Resolved]
  - Dizziness [Recovering/Resolving]
  - Asthenopia [Recovering/Resolving]
  - Faeces soft [Unknown]
  - Mydriasis [Not Recovered/Not Resolved]
  - Abdominal pain upper [Recovered/Resolved]

NARRATIVE: CASE EVENT DATE: 20151231
